FAERS Safety Report 9707274 (Version 2)
Quarter: 2014Q1

REPORT INFORMATION
  Report Type: Spontaneous
  Country: US (occurrence: US)
  Receive Date: 20131125
  Receipt Date: 20140130
  Transmission Date: 20141002
  Serious: No
  Sender: FDA-Public Use
  Company Number: US-009507513-1311USA010394

PATIENT
  Age: 85 Year
  Sex: Female
  Weight: 58.96 kg

DRUGS (12)
  1. OXYTROL FOR WOMEN [Suspect]
     Indication: POLLAKIURIA
     Dosage: 1 DF, UNKNOWN
     Route: 062
     Dates: start: 20131015, end: 20131030
  2. HYDROCHLOROTHIAZIDE (+) LOSARTAN POTASSIUM [Concomitant]
     Indication: HYPERTENSION
     Dosage: 25 MG, QAM
  3. CLONIDINE HYDROCHLORIDE [Concomitant]
     Indication: HYPERTENSION
     Dosage: .1 MG, TID
  4. METOPROLOL [Concomitant]
     Indication: HYPERTENSION
     Dosage: 50 MG, BID
  5. SIMVASTATIN [Concomitant]
     Indication: PRODUCT USED FOR UNKNOWN INDICATION
     Dosage: 20 MG, QPM
  6. NIFEDIPINE [Concomitant]
     Indication: HYPERTENSION
     Dosage: 30 MG, TID
     Route: 048
  7. ACETAMINOPHEN (+) BUTALBITAL (+) CAFFEINE [Concomitant]
     Indication: HEADACHE
     Dosage: UNK, QD
  8. ACETAMINOPHEN (+) BUTALBITAL (+) CAFFEINE [Concomitant]
     Indication: PAIN
  9. CALCIUM D (CALCIUM CARBONATE (+) CHOLECALCIFEROL) [Concomitant]
     Indication: PRODUCT USED FOR UNKNOWN INDICATION
     Dosage: UNK, BID
  10. ZINC (UNSPECIFIED) [Concomitant]
     Indication: PRODUCT USED FOR UNKNOWN INDICATION
     Dosage: UNK, BID
  11. IBUPROFEN [Concomitant]
     Indication: PRODUCT USED FOR UNKNOWN INDICATION
     Dosage: UNK, PRN
  12. DEXAMETHASONE (+) NEOMYCIN SULFATE (+) POLYMYXIN B SULFATE [Concomitant]
     Indication: EYELID DISORDER
     Dosage: UNK, PRN

REACTIONS (1)
  - Drug ineffective [Unknown]
